FAERS Safety Report 14698068 (Version 2)
Quarter: 2018Q2

REPORT INFORMATION
  Report Type: Spontaneous
  Country: IN (occurrence: IN)
  Receive Date: 20180330
  Receipt Date: 20180427
  Transmission Date: 20180711
  Serious: Yes (Hospitalization)
  Sender: FDA-Public Use
  Company Number: IN-CIPLA LTD.-2018IN13700

PATIENT

DRUGS (13)
  1. DIGOXIN. [Concomitant]
     Active Substance: DIGOXIN
     Indication: MITRAL VALVE STENOSIS
  2. FUROSEMIDE. [Concomitant]
     Active Substance: FUROSEMIDE
     Indication: MITRAL VALVE STENOSIS
  3. PHENOXYMETHYL PENICILLIN POTASSIUM [Concomitant]
     Indication: RHEUMATIC HEART DISEASE
     Dosage: 125 MG, BID
     Route: 065
  4. PHENOXYMETHYL PENICILLIN POTASSIUM [Concomitant]
     Indication: MITRAL VALVE STENOSIS
  5. WARFARIN [Suspect]
     Active Substance: WARFARIN
     Indication: ATRIAL FIBRILLATION
     Dosage: 1 MG, DAILY
     Route: 065
  6. WARFARIN [Suspect]
     Active Substance: WARFARIN
     Dosage: 3 MG AND 4 MG ON ALTERNATE DAYS
     Route: 065
     Dates: end: 20170516
  7. DIGOXIN. [Concomitant]
     Active Substance: DIGOXIN
     Indication: RHEUMATIC HEART DISEASE
     Dosage: 0.25 MG ONCE DAILY FOR SIX DAYS A WEEK
     Route: 048
  8. WARFARIN [Suspect]
     Active Substance: WARFARIN
     Indication: RHEUMATIC HEART DISEASE
     Dosage: UNK
     Route: 065
     Dates: start: 20151026
  9. POTASSIUM CHLORIDE                 /07513001/ [Concomitant]
     Active Substance: POTASSIUM CHLORIDE\RIBOFLAVIN 5^-PHOSPHATE SODIUM
     Indication: MITRAL VALVE STENOSIS
  10. POTASSIUM CHLORIDE                 /07513001/ [Concomitant]
     Active Substance: POTASSIUM CHLORIDE\RIBOFLAVIN 5^-PHOSPHATE SODIUM
     Indication: RHEUMATIC HEART DISEASE
     Dosage: 1OZ THRICE DAILY
     Route: 065
  11. WARFARIN [Suspect]
     Active Substance: WARFARIN
     Indication: MITRAL VALVE STENOSIS
     Dosage: 4 MG, QD
     Route: 065
  12. FUROSEMIDE. [Concomitant]
     Active Substance: FUROSEMIDE
     Indication: RHEUMATIC HEART DISEASE
     Dosage: 40 MG, QD
     Route: 065
  13. ATENOLOL. [Concomitant]
     Active Substance: ATENOLOL
     Indication: HYPERTENSION
     Dosage: 25 MG, BID
     Route: 065

REACTIONS (2)
  - Nephropathy [Recovering/Resolving]
  - International normalised ratio decreased [Recovered/Resolved]

NARRATIVE: CASE EVENT DATE: 20170125
